FAERS Safety Report 10093732 (Version 1)
Quarter: 2014Q2

REPORT INFORMATION
  Report Type: Spontaneous
  Country: US (occurrence: US)
  Receive Date: 20140421
  Receipt Date: 20140421
  Transmission Date: 20141212
  Serious: No
  Sender: FDA-Public Use
  Company Number: US-SA-2014SA022915

PATIENT
  Sex: Female

DRUGS (7)
  1. ALLEGRA [Suspect]
     Route: 048
  2. METOPROLOL [Concomitant]
     Route: 065
  3. VERAPAMIL [Concomitant]
     Route: 065
  4. COUMADIN [Concomitant]
     Route: 065
  5. LISINOPRIL [Concomitant]
     Route: 065
  6. ISOSORBIDE [Concomitant]
     Route: 065
  7. PLAVIX [Concomitant]
     Route: 065

REACTIONS (2)
  - Renal disorder [Unknown]
  - Cough [Unknown]
